FAERS Safety Report 5638094-8 (Version None)
Quarter: 2008Q1

REPORT INFORMATION
  Report Type: 
  Country: None (occurrence: None)
  Receive Date: 20080226
  Receipt Date: 20080219
  Transmission Date: 20080703
  Serious: Yes (Other)
  Sender: FDA-Public Use
  Company Number: US-JNJFOC-20080205097

PATIENT
  Age: 13 Year
  Sex: Female
  Weight: 48.99 kg

DRUGS (3)
  1. LEVAQUIN [Suspect]
     Indication: SINUS OPERATION
     Route: 048
  2. MEDROL [Concomitant]
     Indication: SURGERY
     Route: 048
  3. ANTIBACTERIAL [Concomitant]
     Indication: NASAL DISORDER
     Route: 061

REACTIONS (3)
  - ARTHRALGIA [None]
  - JOINT SWELLING [None]
  - SKIN DISCOLOURATION [None]
